FAERS Safety Report 15794461 (Version 1)
Quarter: 2018Q4

REPORT INFORMATION
  Report Type: Spontaneous
  Country: US (occurrence: US)
  Receive Date: 20181213
  Receipt Date: 20181213
  Transmission Date: 20190205
  Serious: No
  Sender: FDA-Public Use
  Company Number: None

PATIENT
  Age: 65 Year
  Sex: Male
  Weight: 83 kg

DRUGS (1)
  1. GLOBULIN, IMMUNE [Suspect]
     Active Substance: HUMAN IMMUNOGLOBULIN G
     Dosage: ?          OTHER DOSE:85;?
     Dates: start: 20181003, end: 20181003

REACTIONS (2)
  - Product quality issue [None]
  - Anaphylactic reaction [None]

NARRATIVE: CASE EVENT DATE: 20181003
